FAERS Safety Report 5135296-4 (Version None)
Quarter: 2006Q4

REPORT INFORMATION
  Report Type: 
  Country: None (occurrence: None)
  Receive Date: 20061026
  Receipt Date: 20061020
  Transmission Date: 20070319
  Serious: Yes (Life-Threatening)
  Sender: FDA-Public Use
  Company Number: PHBS2006DE16475

PATIENT
  Age: 27 Year
  Sex: Female

DRUGS (1)
  1. METOPROLOL [Suspect]
     Dosage: 25 MG, PRN

REACTIONS (5)
  - CARDIAC ANEURYSM [None]
  - FATIGUE [None]
  - HYPOTENSION [None]
  - MYOCARDIAL FIBROSIS [None]
  - VENTRICULAR TACHYCARDIA [None]
